FAERS Safety Report 9214861 (Version 1)
Quarter: 2013Q2

REPORT INFORMATION
  Report Type: Spontaneous
  Country: DE (occurrence: DE)
  Receive Date: 20130405
  Receipt Date: 20130405
  Transmission Date: 20140414
  Serious: Yes (Other)
  Sender: FDA-Public Use
  Company Number: DE-BRISTOL-MYERS SQUIBB COMPANY-18727479

PATIENT
  Age: 53 Year
  Sex: 0

DRUGS (2)
  1. ABILIFY [Suspect]
     Dosage: ADJUSTED TP 400-0-400MG FOR 3 MONTHS ?ADD 5 MG
  2. AMISULPRIDE [Suspect]
     Indication: SCHIZOPHRENIA
     Dosage: FERQUENCY 400-0-400MG

REACTIONS (2)
  - Schizophrenia [Unknown]
  - Off label use [Unknown]
